FAERS Safety Report 11050831 (Version 1)
Quarter: 2015Q2

REPORT INFORMATION
  Report Type: Spontaneous
  Country: US (occurrence: None)
  Receive Date: 20150420
  Receipt Date: 20150420
  Transmission Date: 20150821
  Serious: No
  Sender: FDA-Public Use
  Company Number: None

PATIENT

DRUGS (1)
  1. ZERBAXA [Suspect]
     Active Substance: CEFTOLOZANE SULFATE\TAZOBACTAM SODIUM
     Dosage: STRENGTH:  1 G/05 G PER VIAL   DOSAGE FORM: INJECTABLE    ?SINGLE USE VIAL
     Route: 042

REACTIONS (2)
  - Physical product label issue [None]
  - Circumstance or information capable of leading to medication error [None]
